FAERS Safety Report 4770744-0 (Version None)
Quarter: 2005Q3

REPORT INFORMATION
  Report Type: 
  Country: None (occurrence: None)
  Receive Date: 20050915
  Receipt Date: 19900426
  Transmission Date: 20060218
  Serious: Yes (Life-Threatening)
  Sender: FDA-Public Use
  Company Number: AU-GLAXOSMITHKLINE-G0003370A

PATIENT
  Age: 20 Year
  Sex: Female
  Weight: 75 kg

DRUGS (4)
  1. CEFTAZIDIME SODIUM [Suspect]
     Dosage: 2G TWICE PER DAY
     Route: 042
     Dates: start: 19900421
  2. RANITIDINE [Concomitant]
     Dosage: 50MG TWICE PER DAY
     Route: 042
     Dates: start: 19900420
  3. FLOXACILLIN SODIUM [Concomitant]
     Dosage: 1G FOUR TIMES PER DAY
     Route: 042
     Dates: start: 19900420
  4. ERYTHROMYCIN [Concomitant]
     Dosage: 1G FOUR TIMES PER DAY
     Route: 042
     Dates: start: 19900420

REACTIONS (1)
  - EPILEPSY [None]
